FAERS Safety Report 5976202-X (Version None)
Quarter: 2008Q4

REPORT INFORMATION
  Report Type: 
  Country: None (occurrence: None)
  Receive Date: 20081202
  Receipt Date: 20081121
  Transmission Date: 20090506
  Serious: Yes (Hospitalization)
  Sender: FDA-Public Use
  Company Number: GB-WYE-H06993708

PATIENT
  Age: 78 Year
  Sex: Male

DRUGS (5)
  1. CORDARONE [Suspect]
     Indication: CARDIAC DISORDER
     Route: 048
     Dates: start: 20060101, end: 20081120
  2. CORDARONE [Suspect]
     Indication: ATRIAL FIBRILLATION
  3. CO-AMILOFRUSE [Concomitant]
  4. SPIRIVA [Concomitant]
  5. DIGOXIN [Concomitant]
     Route: 065

REACTIONS (5)
  - CONSTIPATION [None]
  - LETHARGY [None]
  - LIVER FUNCTION TEST ABNORMAL [None]
  - THYROID FUNCTION TEST ABNORMAL [None]
  - WEIGHT DECREASED [None]
